FAERS Safety Report 8890069 (Version 2)
Quarter: 2012Q4

REPORT INFORMATION
  Report Type: Report from Study
  Country: FR (occurrence: FR)
  Receive Date: 20121107
  Receipt Date: 20121128
  Transmission Date: 20130627
  Serious: Yes (Hospitalization)
  Sender: FDA-Public Use
  Company Number: FR-SANOFI-AVENTIS-2012SA080440

PATIENT
  Age: 41 Year
  Sex: Female
  Weight: 49 kg

DRUGS (8)
  1. DOCETAXEL [Suspect]
     Indication: MALIGNANT BREAST NEOPLASM
     Route: 042
     Dates: start: 20121004
  2. PERTUZUMAB [Suspect]
     Indication: MALIGNANT BREAST NEOPLASM
     Route: 042
     Dates: start: 20121003
  3. TRASTUZUMAB [Suspect]
     Indication: MALIGNANT BREAST NEOPLASM
     Dosage: loading dose of 8mg/kg on cycle 1 day 1 with maintainence dose of 6mg/kg(384mg)
     Route: 042
     Dates: start: 20121003
  4. TRASTUZUMAB [Suspect]
     Indication: MALIGNANT BREAST NEOPLASM
     Dosage: loading dose of 8mg/kg on cycle 1 day 1 with maintainence dose of 6mg/kg(384mg)
     Route: 042
  5. SODIUM BICARBONATE [Concomitant]
     Dates: start: 20121009
  6. FLUCONAZOLE [Concomitant]
     Dosage: dose: 500-700 mg
     Dates: start: 20121009
  7. ERYTHROMYCIN [Concomitant]
     Dosage: dose: 2 flasks
     Dates: start: 20121009
  8. DESLORATADINE [Concomitant]
     Dates: start: 20121009

REACTIONS (1)
  - Febrile bone marrow aplasia [Recovered/Resolved with Sequelae]
